FAERS Safety Report 16180505 (Version 3)
Quarter: 2019Q2

REPORT INFORMATION
  Report Type: Spontaneous
  Country: US (occurrence: US)
  Receive Date: 20190410
  Receipt Date: 20190613
  Transmission Date: 20190711
  Serious: No
  Sender: FDA-Public Use
  Company Number: US-PFIZER INC-2019146401

PATIENT
  Age: 47 Year
  Sex: Female
  Weight: 77.11 kg

DRUGS (2)
  1. GABAPENTIN. [Suspect]
     Active Substance: GABAPENTIN
     Indication: NEUROPATHY PERIPHERAL
     Dosage: 600 MG, AS NEEDED (ONE TABLET BY MOUTH TWICE PER DAY AS NEEDED)
     Route: 048
     Dates: start: 2018
  2. GABAPENTIN. [Suspect]
     Active Substance: GABAPENTIN
     Indication: NEURALGIA

REACTIONS (5)
  - Off label use [Unknown]
  - Paraesthesia [Unknown]
  - Hypoaesthesia [Unknown]
  - Insomnia [Unknown]
  - Drug ineffective for unapproved indication [Unknown]
